FAERS Safety Report 20381053 (Version 1)
Quarter: 2022Q1

REPORT INFORMATION
  Report Type: Spontaneous
  Country: DE (occurrence: DE)
  Receive Date: 20220127
  Receipt Date: 20220127
  Transmission Date: 20220423
  Serious: Yes (Other)
  Sender: FDA-Public Use
  Company Number: DE-LABORATORIOS LICONSA S.A.-2112DE03443

PATIENT
  Sex: Male
  Weight: 116 kg

DRUGS (9)
  1. METOPROLOL SUCCINATE [Suspect]
     Active Substance: METOPROLOL SUCCINATE
     Dosage: 2 TABLET(S) DAILY
     Dates: start: 201112
  2. DOXAZOSIN MESYLATE [Suspect]
     Active Substance: DOXAZOSIN MESYLATE
     Dosage: 1 TABLET(S) DAILY
     Dates: start: 202108
  3. METFORMIN HYDROCHLORIDE [Suspect]
     Active Substance: METFORMIN HYDROCHLORIDE
     Dosage: 2 TABLET(S) DAILY
     Dates: start: 201112
  4. CANDESARTAN CILEXETIL [Suspect]
     Active Substance: CANDESARTAN CILEXETIL
     Indication: Product used for unknown indication
     Dosage: 2 TABLET(S) DAILY
     Dates: start: 201112
  5. ATORVASTATIN CALCIUM [Suspect]
     Active Substance: ATORVASTATIN CALCIUM
     Dosage: 1 TABLET(S) DAILY
     Dates: start: 202106
  6. INSULIN LISPRO [Suspect]
     Active Substance: INSULIN LISPRO
     Dosage: 1 IF REQUIRED
     Dates: start: 201112
  7. CHOLECALCIFEROL [Suspect]
     Active Substance: CHOLECALCIFEROL
     Dosage: UNK, QW
     Dates: start: 202108
  8. PROTAPHANE [Suspect]
     Active Substance: INSULIN HUMAN
     Dosage: 1 INJECTION DAILY
  9. ELIQUIS [Suspect]
     Active Substance: APIXABAN
     Dosage: 2 TABLET(S) DAILY
     Dates: start: 20190412

REACTIONS (2)
  - Lymphoedema [Not Recovered/Not Resolved]
  - Lymphorrhoea [Not Recovered/Not Resolved]

NARRATIVE: CASE EVENT DATE: 20111201
